FAERS Safety Report 18659700 (Version 1)
Quarter: 2020Q4

REPORT INFORMATION
  Report Type: Spontaneous
  Country: US (occurrence: US)
  Receive Date: 20201223
  Receipt Date: 20201223
  Transmission Date: 20210114
  Serious: Yes (Other)
  Sender: FDA-Public Use
  Company Number: US-HORIZON-2020HZN02529

PATIENT
  Age: 59 Year
  Sex: Female

DRUGS (3)
  1. XANAX [Concomitant]
     Active Substance: ALPRAZOLAM
  2. DUEXIS [Suspect]
     Active Substance: FAMOTIDINE\IBUPROFEN
     Indication: PROCEDURAL PAIN
     Dosage: TIME INTERVAL:
  3. MOBIC [Concomitant]
     Active Substance: MELOXICAM

REACTIONS (3)
  - Expired product administered [Not Recovered/Not Resolved]
  - Rectal haemorrhage [Recovered/Resolved]
  - Off label use [Not Recovered/Not Resolved]
